FAERS Safety Report 7735664 (Version 4)
Quarter: 2015Q2

REPORT INFORMATION
  Report Type: Spontaneous
  Country: US (occurrence: US)
  Receive Date: 20101223
  Receipt Date: 20150414
  Transmission Date: 20150821
  Serious: Yes (Hospitalization, Other)
  Sender: FDA-Public Use
  Company Number: US-BAYER-2010-003080

PATIENT
  Age: 22 Year
  Sex: Female
  Weight: 79 kg

DRUGS (8)
  1. YAZ [Suspect]
     Active Substance: DROSPIRENONE\ETHINYL ESTRADIOL
     Indication: ACNE
  2. CALCIUM [Concomitant]
     Active Substance: CALCIUM
  3. YAZ [Suspect]
     Active Substance: DROSPIRENONE\ETHINYL ESTRADIOL
     Indication: CONTRACEPTION
     Dosage: UNK
     Route: 048
     Dates: start: 200711, end: 20090515
  4. MINOCYCLINE [Concomitant]
     Active Substance: MINOCYCLINE\MINOCYCLINE HYDROCHLORIDE
  5. PRISTIQ EXTENDED RELEASE [Concomitant]
     Active Substance: DESVENLAFAXINE SUCCINATE
  6. YAZ [Suspect]
     Active Substance: DROSPIRENONE\ETHINYL ESTRADIOL
     Indication: PREMENSTRUAL DYSPHORIC DISORDER
  7. FOLIC ACID. [Concomitant]
     Active Substance: FOLIC ACID
  8. MAXALT [Concomitant]
     Active Substance: RIZATRIPTAN BENZOATE

REACTIONS (12)
  - Asthenia [Recovered/Resolved]
  - Dizziness [Recovered/Resolved]
  - Embolic stroke [Recovered/Resolved]
  - Pain [Recovered/Resolved]
  - Hemiparesis [Recovered/Resolved]
  - Swelling face [Recovered/Resolved]
  - VIIth nerve paralysis [Recovered/Resolved]
  - Basal ganglia infarction [Recovered/Resolved]
  - Mitral valve prolapse [None]
  - Aphasia [Recovered/Resolved]
  - Vasoconstriction [None]
  - Oedema peripheral [None]

NARRATIVE: CASE EVENT DATE: 20090513
